FAERS Safety Report 5592914-4 (Version None)
Quarter: 2008Q1

REPORT INFORMATION
  Report Type: 
  Country: None (occurrence: None)
  Receive Date: 20080116
  Receipt Date: 20080104
  Transmission Date: 20080703
  Serious: Yes (Hospitalization)
  Sender: FDA-Public Use
  Company Number: US-AMGEN-QUU259311

PATIENT
  Age: 65 Year
  Sex: Female

DRUGS (2)
  1. ENBREL [Suspect]
     Indication: RHEUMATOID ARTHRITIS
     Dates: start: 20050101
  2. METHOTREXATE [Concomitant]
     Dates: start: 20050101

REACTIONS (3)
  - PNEUMOCYSTIS JIROVECI INFECTION [None]
  - RHEUMATOID LUNG [None]
  - RHINORRHOEA [None]
